FAERS Safety Report 13414034 (Version 3)
Quarter: 2018Q1

REPORT INFORMATION
  Report Type: Report from Study
  Country: DE (occurrence: DE)
  Receive Date: 20170407
  Receipt Date: 20180326
  Transmission Date: 20180508
  Serious: Yes (Hospitalization)
  Sender: FDA-Public Use
  Company Number: DE-ROCHE-1916782

PATIENT
  Age: 51 Year
  Sex: Male

DRUGS (10)
  1. OMEPRAZOL [Concomitant]
     Active Substance: OMEPRAZOLE
     Route: 065
  2. TOCILIZUMAB. [Suspect]
     Active Substance: TOCILIZUMAB
     Route: 042
     Dates: start: 20170327
  3. ASPIRIN. [Concomitant]
     Active Substance: ASPIRIN
     Route: 065
  4. PREDNISOLON [Concomitant]
     Active Substance: PREDNISOLONE
     Route: 065
  5. TOCILIZUMAB. [Suspect]
     Active Substance: TOCILIZUMAB
     Indication: RHEUMATOID ARTHRITIS
     Route: 042
     Dates: end: 20160818
  6. PANTOPRAZOL [Concomitant]
     Active Substance: PANTOPRAZOLE SODIUM
     Route: 065
  7. RISPERIDON [Concomitant]
     Active Substance: RISPERIDONE
     Route: 065
  8. ACEMETACIN [Concomitant]
     Active Substance: ACEMETACIN
     Route: 065
  9. TICAGRELOR. [Concomitant]
     Active Substance: TICAGRELOR
     Route: 065
  10. MARCUMAR [Concomitant]
     Active Substance: PHENPROCOUMON
     Route: 065

REACTIONS (4)
  - Cardiac perforation [Unknown]
  - Myocardial infarction [Unknown]
  - Coronary artery disease [Unknown]
  - Right ventricular failure [Not Recovered/Not Resolved]
